FAERS Safety Report 8495471-8 (Version None)
Quarter: 2012Q3

REPORT INFORMATION
  Report Type: 
  Country: None (occurrence: None)
  Receive Date: 20120709
  Receipt Date: 20120625
  Transmission Date: 20120928
  Serious: Yes (Other)
  Sender: FDA-Public Use
  Company Number: US-ASTRAZENECA-2010SE22792

PATIENT
  Age: 83 Year
  Sex: Female
  Weight: 90.7 kg

DRUGS (13)
  1. AEROCEPT [Concomitant]
     Indication: DEMENTIA
  2. SEROQUEL [Suspect]
     Indication: DEMENTIA
     Route: 048
  3. SEROQUEL [Suspect]
     Indication: EMOTIONAL DISORDER
     Route: 048
  4. SEROQUEL [Suspect]
     Route: 048
  5. SYNTHROID [Concomitant]
     Indication: HYPOTHYROIDISM
  6. AMLODIPINE [Concomitant]
     Indication: BLOOD PRESSURE ABNORMAL
     Dosage: DAILY
  7. SEROQUEL [Suspect]
     Route: 048
  8. LEXAPRO [Concomitant]
     Indication: DEPRESSION
  9. SEROQUEL [Suspect]
     Indication: ABNORMAL BEHAVIOUR
     Route: 048
  10. PRILOSEC [Concomitant]
  11. SPIRIVA [Concomitant]
  12. SEROQUEL [Suspect]
     Route: 048
  13. ADVAIR DISKUS 100/50 [Concomitant]

REACTIONS (3)
  - PNEUMONIA [None]
  - RIB FRACTURE [None]
  - FALL [None]
